FAERS Safety Report 9480150 (Version 1)
Quarter: 2013Q3

REPORT INFORMATION
  Report Type: Spontaneous
  Country: US (occurrence: US)
  Receive Date: 20130828
  Receipt Date: 20130828
  Transmission Date: 20140515
  Serious: Yes (Hospitalization)
  Sender: FDA-Public Use
  Company Number: US-AMGEN-KDL070042

PATIENT
  Age: 41 Year
  Sex: Female

DRUGS (3)
  1. ENBREL [Suspect]
     Indication: RHEUMATOID ARTHRITIS
     Dosage: 25 MG, 2 TIMES/WK
     Route: 058
     Dates: start: 20031227, end: 20040304
  2. HYDROXYCHLOROQUINE SULFATE [Concomitant]
  3. METHOTREXATE [Concomitant]

REACTIONS (4)
  - Respiratory tract infection [Unknown]
  - Headache [Unknown]
  - Oral infection [Unknown]
  - Dental care [Unknown]
